FAERS Safety Report 8086660-5 (Version None)
Quarter: 2012Q1

REPORT INFORMATION
  Report Type: 
  Country: None (occurrence: None)
  Receive Date: 20120128
  Receipt Date: 20110517
  Transmission Date: 20120608
  Serious: No
  Sender: FDA-Public Use
  Company Number: US-ABBOTT-11P-163-0726746-00

PATIENT
  Sex: Female
  Weight: 88.53 kg

DRUGS (4)
  1. TYLENOL W/ CODEINE NO. 3 [Concomitant]
     Indication: RHEUMATOID ARTHRITIS
  2. ARAVA [Concomitant]
     Indication: RHEUMATOID ARTHRITIS
  3. METHOTREXATE [Concomitant]
     Indication: RHEUMATOID ARTHRITIS
  4. HUMIRA [Suspect]
     Indication: RHEUMATOID ARTHRITIS
     Route: 058
     Dates: start: 20110414

REACTIONS (5)
  - MENORRHAGIA [None]
  - INJECTION SITE PRURITUS [None]
  - MENSTRUATION IRREGULAR [None]
  - DYSMENORRHOEA [None]
  - AMENORRHOEA [None]
